FAERS Safety Report 7651413-6 (Version None)
Quarter: 2011Q3

REPORT INFORMATION
  Report Type: 
  Country: None (occurrence: None)
  Receive Date: 20110802
  Receipt Date: 20110722
  Transmission Date: 20111222
  Serious: Yes (Hospitalization, Other)
  Sender: FDA-Public Use
  Company Number: PHFR2011GB02895

PATIENT
  Sex: Female
  Weight: 80 kg

DRUGS (3)
  1. INFLIXIMAB [Interacting]
     Dosage: UNK DF, UNK
  2. METHOTREXATE [Interacting]
     Dosage: UNK DF, UNK
  3. NEORAL [Suspect]
     Indication: PSORIASIS
     Dosage: 250 MG/DAY
     Dates: start: 20050101, end: 20110413

REACTIONS (5)
  - ACUTE PSYCHOSIS [None]
  - DRUG INTERACTION [None]
  - DELIRIUM [None]
  - RENAL CANCER [None]
  - BLOOD MAGNESIUM DECREASED [None]
